FAERS Safety Report 5471946-0 (Version None)
Quarter: 2007Q3

REPORT INFORMATION
  Report Type: 
  Country: None (occurrence: None)
  Receive Date: 20070928
  Receipt Date: 20070921
  Transmission Date: 20080115
  Serious: Yes (Other)
  Sender: FDA-Public Use
  Company Number: GB-PFIZER INC-2007075786

PATIENT

DRUGS (8)
  1. DOXORUBICIN HYDROCHLORIDE [Suspect]
     Indication: BREAST CANCER
     Dosage: TEXT:90 MBQ CYCLIC
     Route: 042
     Dates: start: 20070214, end: 20070529
  2. CYCLOPHOSPHAMIDE [Suspect]
     Indication: BREAST CANCER
     Route: 042
     Dates: start: 20070214, end: 20070529
  3. CHLORHEXIDINE GLUCONATE [Concomitant]
  4. METOCLOPRAMIDE [Concomitant]
  5. MOVICOL [Concomitant]
  6. ONDANSETRON [Concomitant]
     Route: 048
  7. ONDANSETRON [Concomitant]
     Route: 042
  8. SENNA [Concomitant]

REACTIONS (2)
  - DRUG EXPOSURE DURING PREGNANCY [None]
  - PREMATURE LABOUR [None]
